FAERS Safety Report 4947122-4 (Version None)
Quarter: 2006Q1

REPORT INFORMATION
  Report Type: 
  Country: None (occurrence: None)
  Receive Date: 20060201
  Receipt Date: 20051208
  Transmission Date: 20060701
  Serious: No
  Sender: FDA-Public Use
  Company Number: 2005PV005592

PATIENT
  Age: 58 Year
  Sex: Female
  Weight: 73.4827 kg

DRUGS (2)
  1. BYETTA [Suspect]
     Indication: DIABETES MELLITUS NON-INSULIN-DEPENDENT
     Dosage: 10MCG; BID; SC, 5 MCG; BID; SC
     Route: 058
     Dates: start: 20051002, end: 20051031
  2. BYETTA [Suspect]
     Indication: DIABETES MELLITUS NON-INSULIN-DEPENDENT
     Dosage: 10MCG; BID; SC, 5 MCG; BID; SC
     Route: 058
     Dates: start: 20051101

REACTIONS (4)
  - NAUSEA [None]
  - PARANASAL SINUS HYPERSECRETION [None]
  - RESPIRATORY TRACT INFECTION [None]
  - WEIGHT DECREASED [None]
